FAERS Safety Report 21109364 (Version 1)
Quarter: 2022Q3

REPORT INFORMATION
  Report Type: Spontaneous
  Country: US (occurrence: US)
  Receive Date: 20220721
  Receipt Date: 20220721
  Transmission Date: 20221027
  Serious: No
  Sender: FDA-Public Use
  Company Number: US-ENDO PHARMACEUTICALS INC-2022-002826

PATIENT
  Sex: Female

DRUGS (3)
  1. QWO [Suspect]
     Active Substance: COLLAGENASE CLOSTRIDIUM HISTOLYTICUM-AAES
     Indication: Cellulite
     Dosage: UNK UNKNOWN, UNKNOWN (TREATMENT ONE)
     Route: 065
     Dates: start: 20210507
  2. QWO [Suspect]
     Active Substance: COLLAGENASE CLOSTRIDIUM HISTOLYTICUM-AAES
     Dosage: UNK UNKNOWN, UNKNOWN (TREATMENT TWO)
     Route: 065
     Dates: start: 20210601
  3. QWO [Suspect]
     Active Substance: COLLAGENASE CLOSTRIDIUM HISTOLYTICUM-AAES
     Dosage: UNK UNKNOWN, UNKNOWN (TREATMENT THREE)
     Route: 065
     Dates: start: 20210623

REACTIONS (10)
  - Rash erythematous [Recovered/Resolved]
  - Procedural pain [Unknown]
  - Ecchymosis [Recovering/Resolving]
  - Cellulite [Not Recovered/Not Resolved]
  - Condition aggravated [Not Recovered/Not Resolved]
  - Injection site nodule [Recovered/Resolved]
  - Pain [Recovered/Resolved]
  - Skin discolouration [Not Recovered/Not Resolved]
  - Drug ineffective [Not Recovered/Not Resolved]
  - Contusion [Unknown]

NARRATIVE: CASE EVENT DATE: 20210101
